FAERS Safety Report 14834681 (Version 3)
Quarter: 2018Q2

REPORT INFORMATION
  Report Type: Spontaneous
  Country: BR (occurrence: BR)
  Receive Date: 20180501
  Receipt Date: 20180515
  Transmission Date: 20180711
  Serious: Yes (Other)
  Sender: FDA-Public Use
  Company Number: BR-LUNDBECK-DKLU2048054

PATIENT
  Age: 87 Year
  Sex: Female

DRUGS (8)
  1. URBANIL [Suspect]
     Active Substance: CLOBAZAM
     Route: 048
     Dates: start: 20180419
  2. CANDESARTAN. [Concomitant]
     Active Substance: CANDESARTAN
     Indication: PRODUCT USED FOR UNKNOWN INDICATION
     Route: 065
     Dates: start: 2008
  3. CETIRIZINE [Concomitant]
     Active Substance: CETIRIZINE HYDROCHLORIDE
     Indication: PRODUCT USED FOR UNKNOWN INDICATION
     Route: 065
     Dates: start: 201804, end: 20180409
  4. GLIPHAGE XR [Concomitant]
     Indication: PRODUCT USED FOR UNKNOWN INDICATION
     Route: 065
     Dates: start: 2018
  5. LEVOFLOXACIN. [Concomitant]
     Active Substance: LEVOFLOXACIN
     Indication: PRODUCT USED FOR UNKNOWN INDICATION
     Route: 065
     Dates: start: 20180409, end: 20180412
  6. URBANIL [Suspect]
     Active Substance: CLOBAZAM
     Indication: SLEEP DISORDER
     Route: 048
     Dates: start: 201707
  7. URBANIL [Suspect]
     Active Substance: CLOBAZAM
     Route: 048
     Dates: start: 201801
  8. BUSINID [Concomitant]
     Indication: PRODUCT USED FOR UNKNOWN INDICATION
     Route: 065
     Dates: start: 201804, end: 20180409

REACTIONS (9)
  - Cough [Unknown]
  - Urine output increased [Unknown]
  - Sinusitis [Unknown]
  - Unevaluable event [Unknown]
  - Drug dependence [Unknown]
  - Withdrawal syndrome [Unknown]
  - Rhinitis [Unknown]
  - Ill-defined disorder [Unknown]
  - Insomnia [Unknown]

NARRATIVE: CASE EVENT DATE: 20180409
